FAERS Safety Report 6087301-9 (Version None)
Quarter: 2009Q1

REPORT INFORMATION
  Report Type: 
  Country: None (occurrence: None)
  Receive Date: 20090223
  Receipt Date: 20090217
  Transmission Date: 20090719
  Serious: Yes (Death)
  Sender: FDA-Public Use
  Company Number: A0766443A

PATIENT
  Age: 73 Year
  Sex: Female
  Weight: 87.7 kg

DRUGS (1)
  1. LANOXIN [Suspect]
     Indication: DRUG USE FOR UNKNOWN INDICATION
     Dosage: .125MG UNKNOWN
     Route: 048

REACTIONS (1)
  - DEATH [None]
